FAERS Safety Report 4897232-5 (Version None)
Quarter: 2006Q1

REPORT INFORMATION
  Report Type: 
  Country: None (occurrence: None)
  Receive Date: 20060127
  Receipt Date: 20060106
  Transmission Date: 20060701
  Serious: Yes (Hospitalization, Other)
  Sender: FDA-Public Use
  Company Number: ACO_0207_2006

PATIENT
  Age: 41 Year
  Sex: Male
  Weight: 65 kg

DRUGS (2)
  1. SIRDALUD [Suspect]
     Indication: INTERVERTEBRAL DISC PROTRUSION
     Dosage: 2 MG TID PO
     Route: 048
     Dates: start: 20051228, end: 20051229
  2. COMBAREN [Suspect]
     Indication: INTERVERTEBRAL DISC PROTRUSION
     Dosage: 50 MG TID PO
     Route: 048
     Dates: start: 20051228, end: 20051229

REACTIONS (5)
  - DRY MOUTH [None]
  - FEELING HOT [None]
  - HEART RATE INCREASED [None]
  - PRURITUS [None]
  - SENSORY DISTURBANCE [None]
